FAERS Safety Report 24632050 (Version 1)
Quarter: 2024Q4

REPORT INFORMATION
  Report Type: Spontaneous
  Country: US (occurrence: None)
  Receive Date: 20241118
  Receipt Date: 20241118
  Transmission Date: 20250115
  Serious: Yes (Hospitalization)
  Sender: Public
  Company Number: None

PATIENT
  Age: 78 Year
  Sex: Male
  Weight: 98 kg

DRUGS (1)
  1. FUROSEMIDE [Suspect]
     Active Substance: FUROSEMIDE
     Indication: Cardiac failure congestive
     Dosage: FREQUENCY : DAILY;?
     Route: 048
     Dates: start: 20240715, end: 20240816

REACTIONS (2)
  - Blood creatinine increased [None]
  - Acute kidney injury [None]

NARRATIVE: CASE EVENT DATE: 20240815
